FAERS Safety Report 19443830 (Version 1)
Quarter: 2021Q2

REPORT INFORMATION
  Report Type: Spontaneous
  Country: US (occurrence: US)
  Receive Date: 20210621
  Receipt Date: 20210621
  Transmission Date: 20210717
  Serious: No
  Sender: FDA-Public Use
  Company Number: US-ASTRAZENECA-2021A516587

PATIENT
  Age: 73 Year
  Sex: Male
  Weight: 65.3 kg

DRUGS (2)
  1. DALIRESP [Suspect]
     Active Substance: ROFLUMILAST
     Indication: EMPHYSEMA
     Route: 048
     Dates: start: 2021, end: 202105
  2. OTHER INHALERS [Concomitant]

REACTIONS (3)
  - Drug ineffective [Unknown]
  - Diarrhoea [Recovered/Resolved]
  - Constipation [Recovered/Resolved]

NARRATIVE: CASE EVENT DATE: 2021
